FAERS Safety Report 7597292-7 (Version None)
Quarter: 2011Q3

REPORT INFORMATION
  Report Type: 
  Country: None (occurrence: None)
  Receive Date: 20110708
  Receipt Date: 20110314
  Transmission Date: 20111222
  Serious: No
  Sender: FDA-Public Use
  Company Number: US-GLAXOSMITHKLINE-A0918033A

PATIENT
  Age: 69 Year
  Sex: Female
  Weight: 81.8 kg

DRUGS (8)
  1. ZITHROMAX [Concomitant]
  2. FLUOXETINE [Concomitant]
  3. SYNTHROID [Concomitant]
  4. GABAPENTIN [Concomitant]
  5. FLOVENT [Suspect]
     Indication: BRONCHITIS
     Dosage: 2PUFF TWICE PER DAY
     Route: 055
     Dates: start: 20110311, end: 20110312
  6. XANAX [Concomitant]
  7. TRAMADOL HCL [Concomitant]
  8. HYDROCODONE BITARTRATE [Concomitant]

REACTIONS (3)
  - THROAT IRRITATION [None]
  - OROPHARYNGEAL PAIN [None]
  - DRUG INTOLERANCE [None]
